FAERS Safety Report 11872657 (Version 2)
Quarter: 2016Q1

REPORT INFORMATION
  Report Type: Spontaneous
  Country: CO (occurrence: CO)
  Receive Date: 20151228
  Receipt Date: 20160209
  Transmission Date: 20160526
  Serious: Yes (Other)
  Sender: FDA-Public Use
  Company Number: CO-VIIV HEALTHCARE LIMITED-CO2015GSK181506

PATIENT
  Sex: Male
  Weight: 88 kg

DRUGS (2)
  1. EMTRICITABINE + TENOFOVIR [Concomitant]
     Active Substance: EMTRICITABINE\TENOFOVIR
     Indication: PRODUCT USED FOR UNKNOWN INDICATION
     Dosage: 200/300 MG
  2. CELSENTRI [Suspect]
     Active Substance: MARAVIROC
     Indication: HERPES ZOSTER
     Dosage: 150 MG, BID
     Route: 048
     Dates: start: 20151116

REACTIONS (5)
  - Depression [Unknown]
  - Medication error [Unknown]
  - Drug dose omission [Unknown]
  - Product use issue [Unknown]
  - Psychotic disorder [Unknown]

NARRATIVE: CASE EVENT DATE: 20151118
